FAERS Safety Report 14410399 (Version 1)
Quarter: 2018Q1

REPORT INFORMATION
  Report Type: Report from Study
  Country: PL (occurrence: PL)
  Receive Date: 20180119
  Receipt Date: 20180119
  Transmission Date: 20180509
  Serious: Yes (Death)
  Sender: FDA-Public Use
  Company Number: PL-SA-2018SA011679

PATIENT
  Age: 53 Year
  Sex: Male

DRUGS (2)
  1. CYCLOSPORINE. [Concomitant]
     Active Substance: CYCLOSPORINE
     Indication: PROPHYLAXIS AGAINST GRAFT VERSUS HOST DISEASE
     Route: 065
  2. ANTI-THYMOCYTE GLOBULIN (RABBIT) [Suspect]
     Active Substance: LAPINE T-LYMPHOCYTE IMMUNE GLOBULIN
     Indication: BONE MARROW CONDITIONING REGIMEN
     Dosage: CUMULATIVE DOSE: 10 MG/KG BODY WEIGHT [B.W.])
     Route: 041

REACTIONS (8)
  - Human polyomavirus infection [Fatal]
  - Chronic graft versus host disease [Fatal]
  - Skin lesion [Fatal]
  - Epstein-Barr virus infection [Fatal]
  - Infection reactivation [Fatal]
  - Hepatitis [Fatal]
  - Herpes virus infection [Fatal]
  - Sjogren^s syndrome [Fatal]
